FAERS Safety Report 6852970-X (Version None)
Quarter: 2010Q3

REPORT INFORMATION
  Report Type: 
  Country: None (occurrence: None)
  Receive Date: 20100717
  Receipt Date: 20071127
  Transmission Date: 20110219
  Serious: No
  Sender: FDA-Public Use
  Company Number: US-PFIZER INC-2007101585

PATIENT
  Age: 75 Year
  Sex: Male
  Weight: 95.454 kg

DRUGS (15)
  1. CHANTIX [Suspect]
     Indication: SMOKING CESSATION THERAPY
     Dates: start: 20070101
  2. OXYGEN [Concomitant]
  3. ALBUTEROL [Concomitant]
  4. GLIPIZIDE [Concomitant]
  5. VERAPAMIL [Concomitant]
  6. ACETYLSALICYLIC ACID [Concomitant]
  7. VITAMIN C [Concomitant]
  8. VITAMIN B-12 [Concomitant]
  9. VITAMIN E [Concomitant]
  10. MULTI-VITAMINS [Concomitant]
  11. FISH OIL [Concomitant]
  12. GLUCOSAMINE [Concomitant]
  13. FAMOTIDINE [Concomitant]
     Indication: ABDOMINAL DISCOMFORT
  14. SENNA [Concomitant]
  15. AMBIEN [Concomitant]
     Indication: SLEEP DISORDER

REACTIONS (1)
  - ERECTILE DYSFUNCTION [None]
